FAERS Safety Report 25101688 (Version 2)
Quarter: 2025Q2

REPORT INFORMATION
  Report Type: Spontaneous
  Country: US (occurrence: US)
  Receive Date: 20250320
  Receipt Date: 20250404
  Transmission Date: 20250716
  Serious: No
  Sender: BIOMARIN
  Company Number: US-BIOMARINAP-US-2025-164593

PATIENT

DRUGS (2)
  1. PALYNZIQ [Suspect]
     Active Substance: PEGVALIASE-PQPZ
     Indication: Phenylketonuria
     Dosage: 20 MILLIGRAM, QD
     Route: 058
  2. PALYNZIQ [Suspect]
     Active Substance: PEGVALIASE-PQPZ
     Route: 058
     Dates: start: 201911

REACTIONS (1)
  - Mood swings [Unknown]
